FAERS Safety Report 9043666 (Version 1)
Quarter: 2013Q1

REPORT INFORMATION
  Report Type: Report from Study
  Country: US (occurrence: US)
  Receive Date: 20130129
  Receipt Date: 20130129
  Transmission Date: 20140127
  Serious: No
  Sender: FDA-Public Use
  Company Number: US-ABBOTT-12P-163-0911793-00

PATIENT
  Age: 51 Year
  Sex: Female

DRUGS (25)
  1. HUMIRA 40 MG/0.8 ML PEN [Suspect]
     Indication: CROHN^S DISEASE
     Dosage: 2ND PART OF LOADING DOSE
     Dates: start: 20120216
  2. FLUOXETINE [Concomitant]
     Indication: DEPRESSION
     Dosage: 20 MG DAILY
     Route: 048
  3. DICYCLOMINE [Concomitant]
     Indication: CROHN^S DISEASE
  4. GABAPENTIN [Concomitant]
     Indication: CROHN^S DISEASE
     Route: 048
  5. PROMETHAZINE [Concomitant]
     Indication: NAUSEA
     Dosage: 25 MG AS NEEDED
     Route: 048
  6. RANITIDINE [Concomitant]
     Indication: PRODUCT USED FOR UNKNOWN INDICATION
     Route: 048
  7. TRAZODONE [Concomitant]
     Indication: INSOMNIA
     Dosage: AT BEDTIME
  8. PLAVIX [Concomitant]
     Indication: CARDIAC DISORDER
     Dosage: 75 MG DAILY
     Route: 048
  9. BABY ASPIRIN [Concomitant]
     Indication: CARDIAC DISORDER
     Dosage: 81 MG DAILY
     Route: 048
  10. VESICARE [Concomitant]
     Indication: CARDIAC DISORDER
     Dosage: 10 MG DAILY
     Route: 048
  11. SIMVASTATIN [Concomitant]
     Indication: CARDIAC DISORDER
     Dosage: 40 MG DAILY
     Route: 048
  12. METOPROLOL [Concomitant]
     Indication: CARDIAC DISORDER
     Route: 048
  13. PERCOCET [Concomitant]
     Indication: PAIN IN EXTREMITY
     Dosage: 10/325MG 1 TABLET EVERY 4-6 HRS AS NEEDED
  14. PERCOCET [Concomitant]
     Indication: BACK PAIN
  15. DOK [Concomitant]
     Indication: CROHN^S DISEASE
     Dosage: 100MG, 2 CAPSULES TWICE DAILY, AS NEEDED
     Route: 048
  16. DOK [Concomitant]
     Indication: CONSTIPATION
  17. DIPHEN ATROPINE [Concomitant]
     Indication: CROHN^S DISEASE
     Route: 048
  18. PRENATAL VITAMINS [Concomitant]
     Indication: CROHN^S DISEASE
     Dosage: DAILY
     Route: 048
  19. PRENATAL VITAMINS [Concomitant]
     Indication: VITAMIN SUPPLEMENTATION
  20. SKELAXIN [Concomitant]
     Indication: CROHN^S DISEASE
     Route: 048
  21. CETRIZINE [Concomitant]
     Indication: HYPERSENSITIVITY
     Dosage: 10 MG DAILY
     Route: 048
  22. LOSARTAN HCT [Concomitant]
     Indication: PRODUCT USED FOR UNKNOWN INDICATION
     Dosage: 50/12 MG DAILY
     Route: 048
  23. METRONIDAZOLE [Concomitant]
     Indication: CROHN^S DISEASE
     Dates: start: 201201
  24. BALSALAZIDE [Concomitant]
     Indication: CROHN^S DISEASE
     Dosage: 750 MG, 3 TABLETS X 3 TIMES DAILY
     Dates: start: 201201
  25. ISOSORB [Concomitant]
     Indication: CARDIAC DISORDER
     Dosage: 30 MG DAILY
     Route: 048
     Dates: start: 201202

REACTIONS (1)
  - Injection site bruising [Not Recovered/Not Resolved]
